FAERS Safety Report 6152687-3 (Version None)
Quarter: 2009Q2

REPORT INFORMATION
  Report Type: 
  Country: None (occurrence: None)
  Receive Date: 20090413
  Receipt Date: 20090330
  Transmission Date: 20091009
  Serious: Yes (Death)
  Sender: FDA-Public Use
  Company Number: GB-ROCHE-530148

PATIENT
  Sex: Male

DRUGS (2)
  1. CAPECITABINE [Suspect]
     Indication: COLORECTAL CANCER
     Dosage: DOSAGE REPORTED AS 4000.  THERAPY PERMANENTLY STOPPED
     Route: 065
     Dates: start: 20071010, end: 20071023
  2. OXALIPLATIN [Suspect]
     Indication: COLORECTAL CANCER
     Dosage: DOSAGE REPORTED AS 260.  THERAPY PERMANENTLY STOPPED
     Route: 065
     Dates: start: 20071010, end: 20071010

REACTIONS (1)
  - DIARRHOEA [None]
